FAERS Safety Report 14171469 (Version 2)
Quarter: 2018Q3

REPORT INFORMATION
  Report Type: Spontaneous
  Country: US (occurrence: US)
  Receive Date: 20171108
  Receipt Date: 20180723
  Transmission Date: 20181010
  Serious: Yes (Hospitalization)
  Sender: FDA-Public Use
  Company Number: US-BAYER-2017-214066

PATIENT
  Age: 67 Year
  Sex: Female
  Weight: 57.6 kg

DRUGS (2)
  1. GADAVIST [Suspect]
     Active Substance: GADOBUTROL
     Indication: NUCLEAR MAGNETIC RESONANCE IMAGING
     Dosage: 7 ML, ONCE
     Dates: start: 20170309
  2. GADAVIST [Suspect]
     Active Substance: GADOBUTROL
     Indication: SPINAL OPERATION
     Dosage: 5 ML, ONCE
     Route: 042
     Dates: start: 20180124

REACTIONS (6)
  - Sneezing [None]
  - Eye swelling [None]
  - Urticaria [None]
  - Urticaria [Recovered/Resolved]
  - Pruritus generalised [None]
  - Pruritus [Recovered/Resolved]

NARRATIVE: CASE EVENT DATE: 2017
